FAERS Safety Report 4554521-1 (Version None)
Quarter: 2004Q4

REPORT INFORMATION
  Report Type: 
  Country: None (occurrence: None)
  Receive Date: 20041227
  Receipt Date: 20041109
  Transmission Date: 20050328
  Serious: No
  Sender: FDA-Public Use
  Company Number: 0204003

PATIENT
  Age: 50 Year
  Sex: Female

DRUGS (1)
  1. DEPODUR (TM) [Suspect]
     Indication: PAIN
     Dosage: (20 MG, ONCE), EPIDURAL
     Route: 008

REACTIONS (2)
  - NAUSEA [None]
  - RESPIRATORY DISORDER [None]
